FAERS Safety Report 9396787 (Version 2)
Quarter: 2013Q3

REPORT INFORMATION
  Report Type: Spontaneous
  Country: CN (occurrence: CN)
  Receive Date: 20130712
  Receipt Date: 20130717
  Transmission Date: 20140515
  Serious: Yes (Other)
  Sender: FDA-Public Use
  Company Number: CN-009507513-1307CHN003922

PATIENT
  Age: 77 Year
  Sex: Male
  Weight: 52 kg

DRUGS (1)
  1. TIENAM [Suspect]
     Indication: INFECTION
     Dosage: DAILY DOSE: 1.5 G
     Route: 041
     Dates: start: 20120108, end: 20120115

REACTIONS (1)
  - Epilepsy [Recovering/Resolving]
